FAERS Safety Report 8160774-3 (Version None)
Quarter: 2012Q1

REPORT INFORMATION
  Report Type: 
  Country: None (occurrence: None)
  Receive Date: 20120223
  Receipt Date: 20120215
  Transmission Date: 20120608
  Serious: Yes (Other)
  Sender: FDA-Public Use
  Company Number: PHHY2012IT013808

PATIENT
  Sex: Male

DRUGS (3)
  1. ZOMETA [Suspect]
     Indication: PROSTATE CANCER METASTATIC
     Dosage: 4 MG, QMO
     Route: 042
     Dates: start: 20120208, end: 20121208
  2. ZOMETA [Suspect]
     Dosage: UNK UKN, UNK
  3. ELIGARD [Concomitant]
     Dosage: 22.5 MG, UNK
     Route: 058
     Dates: start: 20111104

REACTIONS (2)
  - IIIRD NERVE PARESIS [None]
  - PERIORBITAL DISORDER [None]
